FAERS Safety Report 15378928 (Version 1)
Quarter: 2018Q3

REPORT INFORMATION
  Report Type: Spontaneous
  Country: FR (occurrence: FR)
  Receive Date: 20180913
  Receipt Date: 20180913
  Transmission Date: 20181010
  Serious: Yes (Other)
  Sender: FDA-Public Use
  Company Number: FR-SANOFI-AVENTIS-2012SA050580

PATIENT
  Age: 57 Year
  Sex: Female

DRUGS (4)
  1. PREVISCAN [FLUINDIONE] [Interacting]
     Active Substance: FLUINDIONE
     Dosage: 1 DF, QD
     Dates: start: 201011
  2. TAVANIC [Concomitant]
     Active Substance: LEVOFLOXACIN
     Dosage: UNK
  3. RIFADINE [Suspect]
     Active Substance: RIFAMPIN
     Indication: PRODUCT USED FOR UNKNOWN INDICATION
     Dosage: UNK UNK,UNK
     Route: 048
     Dates: start: 20120105
  4. CORDARONE [Concomitant]
     Active Substance: AMIODARONE HYDROCHLORIDE
     Dosage: UNK
     Dates: start: 201011

REACTIONS (3)
  - International normalised ratio decreased [Recovering/Resolving]
  - Drug interaction [Recovering/Resolving]
  - Drug ineffective [Unknown]
